FAERS Safety Report 8987095 (Version 1)
Quarter: 2012Q4

REPORT INFORMATION
  Report Type: 
  Country: US (occurrence: US)
  Receive Date: 20121227
  Receipt Date: 20121227
  Transmission Date: 20130627
  Serious: Yes (Other)
  Sender: FDA-Public Use
  Company Number: US-AMGEN-USASP2012082547

PATIENT
  Sex: Female

DRUGS (1)
  1. NEULASTA [Suspect]
     Indication: PRODUCT USED FOR UNKNOWN INDICATION
     Dosage: UNK
     Dates: start: 20120220, end: 20120220

REACTIONS (6)
  - Loss of consciousness [Unknown]
  - Road traffic accident [Unknown]
  - Lymphoma [Unknown]
  - Incorrect dose administered [Unknown]
  - Anger [Unknown]
  - Blood test abnormal [Unknown]
